FAERS Safety Report 4474395-7 (Version None)
Quarter: 2004Q4

REPORT INFORMATION
  Report Type: 
  Country: None (occurrence: None)
  Receive Date: 20041004
  Receipt Date: 20040916
  Transmission Date: 20050328
  Serious: Yes (Hospitalization)
  Sender: FDA-Public Use
  Company Number: 2004UW19454

PATIENT
  Age: 73 Year
  Sex: Female

DRUGS (19)
  1. CRESTOR [Suspect]
     Dosage: 20 MG QD PO
     Route: 048
     Dates: start: 20031001, end: 20040301
  2. CRESTOR [Suspect]
     Dosage: 10 MG QD PO
     Route: 048
     Dates: start: 20040301, end: 20040601
  3. CRESTOR [Suspect]
     Dosage: 20 MG QD PO
     Route: 048
     Dates: start: 20040601, end: 20040701
  4. CRESTOR [Suspect]
     Dosage: 40 MG QD PO
     Route: 048
     Dates: start: 20040729
  5. LOPID [Suspect]
     Dosage: 600 MG BID
  6. MOTRIN [Suspect]
     Dosage: 600 MG BID
  7. LIPITOR [Concomitant]
  8. ZANTAC [Concomitant]
  9. PROZAC [Concomitant]
  10. TIAZAC [Concomitant]
  11. TRAZODONE HCL [Concomitant]
  12. PROBENECID [Concomitant]
  13. ASPIRIN [Concomitant]
  14. CALCIUM [Concomitant]
  15. VITAMIN D [Concomitant]
  16. LASIX [Concomitant]
  17. CLARINEX [Concomitant]
  18. MIRALAX [Concomitant]
  19. PRINIVIL [Concomitant]

REACTIONS (2)
  - RENAL FAILURE [None]
  - RHABDOMYOLYSIS [None]
